FAERS Safety Report 13738802 (Version 1)
Quarter: 2017Q3

REPORT INFORMATION
  Report Type: Spontaneous
  Country: US (occurrence: US)
  Receive Date: 20170710
  Receipt Date: 20170710
  Transmission Date: 20171127
  Serious: No
  Sender: FDA-Public Use
  Company Number: US-009507513-1706USA007490

PATIENT
  Age: 25 Year
  Sex: Male

DRUGS (2)
  1. TEMODAR [Suspect]
     Active Substance: TEMOZOLOMIDE
     Indication: GLIOBLASTOMA MULTIFORME
     Dosage: UNK
     Dates: start: 201304, end: 201305
  2. RINDOPEPIMUT [Concomitant]
     Active Substance: RINDOPEPIMUT
     Indication: GLIOBLASTOMA MULTIFORME

REACTIONS (1)
  - Rash [Unknown]
